FAERS Safety Report 23762117 (Version 1)
Quarter: 2024Q2

REPORT INFORMATION
  Report Type: Report from Study
  Country: BE (occurrence: BE)
  Receive Date: 20240419
  Receipt Date: 20240419
  Transmission Date: 20240716
  Serious: Yes (Other)
  Sender: FDA-Public Use
  Company Number: BE-JNJFOC-20240444218

PATIENT

DRUGS (2)
  1. REMICADE [Suspect]
     Active Substance: INFLIXIMAB
     Indication: Product used for unknown indication
     Route: 041
  2. REMICADE [Suspect]
     Active Substance: INFLIXIMAB
     Route: 058

REACTIONS (6)
  - Adverse event [Unknown]
  - Nonspecific reaction [Unknown]
  - Injection site reaction [Unknown]
  - Infection [Unknown]
  - Type IV hypersensitivity reaction [Unknown]
  - Infusion related reaction [Unknown]
